FAERS Safety Report 15693160 (Version 2)
Quarter: 2018Q4

REPORT INFORMATION
  Report Type: Spontaneous
  Country: TW (occurrence: TW)
  Receive Date: 20181206
  Receipt Date: 20181219
  Transmission Date: 20190205
  Serious: Yes (Life-Threatening, Hospitalization)
  Sender: FDA-Public Use
  Company Number: TW-ROCHE-2226238

PATIENT
  Age: 59 Year
  Sex: Female
  Weight: 56 kg

DRUGS (9)
  1. DAILYCARE ACTIBEST [Concomitant]
     Route: 048
     Dates: start: 20180704
  2. METHOTREXATE. [Concomitant]
     Active Substance: METHOTREXATE
  3. ENPEX [Concomitant]
     Route: 048
     Dates: start: 20180406
  4. ENPEX [Concomitant]
     Route: 048
     Dates: start: 20181114, end: 20181203
  5. ARHEUMA [Concomitant]
     Route: 048
     Dates: start: 20181114, end: 20181203
  6. CRESTOR [Concomitant]
     Active Substance: ROSUVASTATIN CALCIUM
     Route: 048
     Dates: start: 20180306
  7. ACTEMRA [Suspect]
     Active Substance: TOCILIZUMAB
     Indication: RHEUMATOID ARTHRITIS
     Route: 058
     Dates: end: 20181117
  8. ARCOXIA [Concomitant]
     Active Substance: ETORICOXIB
     Route: 048
     Dates: start: 20170305
  9. ARHEUMA [Concomitant]
     Indication: RHEUMATOID ARTHRITIS
     Route: 048
     Dates: start: 20170305

REACTIONS (4)
  - Pneumothorax spontaneous [Not Recovered/Not Resolved]
  - Nasopharyngitis [Unknown]
  - Pneumonia [Not Recovered/Not Resolved]
  - Tuberculosis [Not Recovered/Not Resolved]

NARRATIVE: CASE EVENT DATE: 201811
